FAERS Safety Report 25483907 (Version 2)
Quarter: 2025Q3

REPORT INFORMATION
  Report Type: Spontaneous
  Country: EU (occurrence: EU)
  Receive Date: 20250626
  Receipt Date: 20250708
  Transmission Date: 20251021
  Serious: Yes (Other)
  Sender: PFIZER
  Company Number: None

PATIENT
  Age: 69 Year
  Sex: Male

DRUGS (2)
  1. BRAFTOVI [Suspect]
     Active Substance: ENCORAFENIB
     Indication: Adenocarcinoma of colon
     Dosage: 300 MG, 1X/DAY
     Route: 048
     Dates: start: 20240625, end: 20241220
  2. ERBITUX [Suspect]
     Active Substance: CETUXIMAB
     Indication: Adenocarcinoma of colon
     Route: 042
     Dates: start: 20240625, end: 20241220

REACTIONS (2)
  - Actinic keratosis [Recovered/Resolved]
  - Melanocytic naevus [Recovered/Resolved]
